FAERS Safety Report 6925387-7 (Version None)
Quarter: 2010Q3

REPORT INFORMATION
  Report Type: 
  Country: None (occurrence: None)
  Receive Date: 20100813
  Receipt Date: 20100813
  Transmission Date: 20110219
  Serious: Yes (Other)
  Sender: FDA-Public Use
  Company Number: None

PATIENT
  Sex: Female
  Weight: 136.0791 kg

DRUGS (1)
  1. BACTRIM DS [Suspect]
     Indication: BRONCHITIS
     Dosage: BID ORAL
     Route: 048
     Dates: start: 20091230, end: 20100110

REACTIONS (11)
  - ASTHENIA [None]
  - CONTUSION [None]
  - ERYTHEMA [None]
  - FATIGUE [None]
  - HAEMORRHAGE [None]
  - HEADACHE [None]
  - MUSCULOSKELETAL STIFFNESS [None]
  - NAUSEA [None]
  - OROPHARYNGEAL PAIN [None]
  - PYREXIA [None]
  - RASH PRURITIC [None]
